FAERS Safety Report 5919633-6 (Version None)
Quarter: 2008Q4

REPORT INFORMATION
  Report Type: 
  Country: None (occurrence: None)
  Receive Date: 20081015
  Receipt Date: 20081009
  Transmission Date: 20090506
  Serious: Yes (Life-Threatening, Hospitalization)
  Sender: FDA-Public Use
  Company Number: US-KINGPHARMUSA00001-K200801052

PATIENT

DRUGS (13)
  1. INTAL [Suspect]
     Dates: start: 20070801
  2. INTAL [Suspect]
     Indication: RHINITIS
  3. RENIVEZE [Suspect]
     Indication: HYPERTENSION
     Dosage: 5 MG, QD
     Route: 048
     Dates: start: 20080416, end: 20080815
  4. UNIPHYL [Concomitant]
     Dosage: 200 MG, UNK
     Route: 048
     Dates: end: 20080815
  5. URSO                               /00465701/ [Concomitant]
     Dosage: 100 MG, BID
     Route: 048
     Dates: start: 19890101, end: 20080815
  6. MUCODYNE [Concomitant]
     Dosage: 500 UNK, UNK
     Route: 048
  7. ASPIRIN [Concomitant]
     Indication: CEREBRAL INFARCTION
     Dosage: UNK, UNK
     Route: 048
     Dates: start: 20031201, end: 20080815
  8. CLARITIN                           /00917501/ [Concomitant]
     Indication: RHINITIS ALLERGIC
     Dosage: 10 MG
     Route: 048
     Dates: start: 20070801, end: 20080815
  9. CLARITIN                           /00917501/ [Concomitant]
  10. SINGULAIR [Concomitant]
     Dosage: 10 MG
     Route: 048
     Dates: start: 20070801, end: 20070815
  11. PULMICORT-100 [Concomitant]
     Dosage: 100 UG, UNK
     Dates: start: 20070801
  12. AMLODIN [Concomitant]
     Indication: HYPERTENSION
     Dosage: 2.5 MG, UNK
     Route: 048
     Dates: end: 20080815
  13. MOHRUS [Concomitant]
     Dosage: UNK, QD
     Dates: start: 19990101, end: 20080815

REACTIONS (10)
  - ANOREXIA [None]
  - HAEMATURIA [None]
  - HYPERGLOBULINAEMIA [None]
  - HYPOALBUMINAEMIA [None]
  - LEUKOCYTOCLASTIC VASCULITIS [None]
  - MALAISE [None]
  - OEDEMA [None]
  - PROTEINURIA [None]
  - PURPURA [None]
  - TUBULOINTERSTITIAL NEPHRITIS [None]
